FAERS Safety Report 8879910 (Version 2)
Quarter: 2012Q4

REPORT INFORMATION
  Report Type: 
  Country: FR (occurrence: FR)
  Receive Date: 20121031
  Receipt Date: 20121112
  Transmission Date: 20130627
  Serious: Yes (Other)
  Sender: FDA-Public Use
  Company Number: FR-ASTRAZENECA-2012SE81248

PATIENT
  Age: 20179 Day
  Sex: Female
  Weight: 70 kg

DRUGS (3)
  1. XEROQUEL [Suspect]
     Indication: BIPOLAR DISORDER
     Route: 048
     Dates: start: 20121003, end: 20121005
  2. SEROPLEX [Concomitant]
     Indication: DEPRESSION
     Route: 048
     Dates: start: 2011
  3. DUPHALAC [Concomitant]
     Indication: CONSTIPATION
     Route: 048

REACTIONS (1)
  - Angioedema [Recovered/Resolved]
